FAERS Safety Report 9855058 (Version 2)
Quarter: 2014Q2

REPORT INFORMATION
  Report Type: Spontaneous
  Country: IL (occurrence: None)
  Receive Date: 20140127
  Receipt Date: 20140415
  Transmission Date: 20141212
  Serious: Yes (Other)
  Sender: FDA-Public Use
  Company Number: 2013AP010811

PATIENT
  Age: 25 Year
  Sex: Female

DRUGS (2)
  1. FERRIPROX [Suspect]
     Indication: THALASSAEMIA BETA
  2. FERRIPROX [Suspect]
     Indication: IRON OVERLOAD

REACTIONS (1)
  - Neutropenia [None]
